FAERS Safety Report 8336042-3 (Version None)
Quarter: 2012Q2

REPORT INFORMATION
  Report Type: 
  Country: None (occurrence: None)
  Receive Date: 20120501
  Receipt Date: 20120501
  Transmission Date: 20120825
  Serious: Yes (Hospitalization)
  Sender: FDA-Public Use
  Company Number: None

PATIENT
  Age: 74 Year
  Sex: Male
  Weight: 105.2 kg

DRUGS (2)
  1. LISINOPRIL [Suspect]
     Indication: HYPERTENSION
     Dosage: MG EVERY DAY PO
     Route: 048
     Dates: start: 19981015, end: 20120313
  2. LISINOPRIL [Suspect]
     Indication: CARDIAC FAILURE CONGESTIVE
     Dosage: MG EVERY DAY PO
     Route: 048
     Dates: start: 19981015, end: 20120313

REACTIONS (3)
  - RENAL FAILURE [None]
  - BRADYCARDIA [None]
  - HYPERKALAEMIA [None]
